FAERS Safety Report 12624468 (Version 5)
Quarter: 2016Q4

REPORT INFORMATION
  Report Type: Spontaneous
  Country: JP (occurrence: JP)
  Receive Date: 20160805
  Receipt Date: 20161214
  Transmission Date: 20170207
  Serious: Yes (Death, Other)
  Sender: FDA-Public Use
  Company Number: JP-ROCHE-1809275

PATIENT
  Sex: Female

DRUGS (6)
  1. OMEPRAZOLE. [Concomitant]
     Active Substance: OMEPRAZOLE
     Dosage: DOSAGE IS UNCERTAIN.
     Route: 048
     Dates: start: 2014
  2. BONVIVA [Suspect]
     Active Substance: IBANDRONATE SODIUM
     Indication: OSTEOPOROSIS
     Route: 042
     Dates: start: 201408, end: 201607
  3. C-CYSTEN [Concomitant]
     Active Substance: CARBOCYSTEINE
     Dosage: START DATE JAN/2016
     Route: 048
     Dates: start: 201601
  4. MENATETRENONE [Concomitant]
     Active Substance: MENATETRENONE
     Dosage: DOSAGE IS UNCERTAIN.
     Route: 048
     Dates: start: 2014
  5. FUROSEMIDE. [Concomitant]
     Active Substance: FUROSEMIDE
     Dosage: UNCERTAIN DOSAGE AND ONCE/DAY (3 AND FOUR TIMES/W)
     Route: 048
     Dates: start: 2014
  6. CILOSTAZOL. [Concomitant]
     Active Substance: CILOSTAZOL
     Dosage: DOSAGE IS UNCERTAIN.
     Route: 048
     Dates: start: 2014

REACTIONS (4)
  - Sepsis [Fatal]
  - White blood cell count decreased [Fatal]
  - Bronchitis [Unknown]
  - Decreased immune responsiveness [Unknown]

NARRATIVE: CASE EVENT DATE: 2016
